FAERS Safety Report 9816323 (Version 3)
Quarter: 2014Q1

REPORT INFORMATION
  Report Type: Spontaneous
  Country: PL (occurrence: PL)
  Receive Date: 20140114
  Receipt Date: 20140124
  Transmission Date: 20141002
  Serious: Yes (Life-Threatening, Other)
  Sender: FDA-Public Use
  Company Number: PL-JNJFOC-20140107097

PATIENT
  Age: 29 Year
  Sex: Female
  Weight: 50 kg

DRUGS (11)
  1. REMICADE [Suspect]
     Indication: CROHN^S DISEASE
     Route: 042
     Dates: start: 20131224, end: 20131224
  2. REMICADE [Suspect]
     Indication: CROHN^S DISEASE
     Route: 042
     Dates: start: 20131210
  3. REMICADE [Suspect]
     Indication: CROHN^S DISEASE
     Route: 042
     Dates: start: 2011, end: 20121105
  4. ASAMAX [Concomitant]
     Indication: ANTIINFLAMMATORY THERAPY
     Route: 065
     Dates: start: 20131210, end: 20131210
  5. MERCAPTOPURINE [Concomitant]
     Indication: ANTIINFLAMMATORY THERAPY
     Route: 065
     Dates: start: 20131210, end: 20131210
  6. HYDROCORTISONE [Concomitant]
     Indication: PREMEDICATION
     Route: 065
     Dates: start: 20131224, end: 20131224
  7. HYDROCORTISONE [Concomitant]
     Indication: PROPHYLAXIS
     Route: 065
     Dates: start: 20131224, end: 20131224
  8. ZYRTEC [Concomitant]
     Indication: PREMEDICATION
     Route: 048
     Dates: start: 20131224, end: 20131224
  9. ZYRTEC [Concomitant]
     Indication: PROPHYLAXIS
     Route: 048
     Dates: start: 20131224, end: 20131224
  10. PARACETAMOL [Concomitant]
     Indication: PREMEDICATION
     Route: 065
     Dates: start: 20131224, end: 20131224
  11. PARACETAMOL [Concomitant]
     Indication: PROPHYLAXIS
     Route: 065
     Dates: start: 20131224, end: 20131224

REACTIONS (8)
  - Anal fistula [Unknown]
  - Swelling face [Recovered/Resolved]
  - Hyperhidrosis [Recovered/Resolved]
  - Infusion related reaction [Recovered/Resolved]
  - Erythema [Recovered/Resolved]
  - Palpitations [Recovered/Resolved]
  - Hypertension [Recovered/Resolved]
  - Crohn^s disease [Unknown]
